FAERS Safety Report 9345346 (Version 2)
Quarter: 2013Q4

REPORT INFORMATION
  Report Type: Spontaneous
  Country: FR (occurrence: FR)
  Receive Date: 20130613
  Receipt Date: 20131002
  Transmission Date: 20140711
  Serious: Yes (Hospitalization)
  Sender: FDA-Public Use
  Company Number: FR-B.I. PHARMACEUTICALS,INC./RIDGEFIELD-2013-BI-16747BY

PATIENT
  Age: 82 Year
  Sex: Female

DRUGS (1)
  1. PRITORPLUS [Suspect]
     Indication: HYPERTENSION
     Dosage: DAILY DOSE: 80/12.5 MG
     Route: 048
     Dates: end: 20130527

REACTIONS (1)
  - Hyponatraemia [Unknown]
